FAERS Safety Report 19983275 (Version 1)
Quarter: 2021Q4

REPORT INFORMATION
  Report Type: Spontaneous
  Country: US (occurrence: US)
  Receive Date: 20211022
  Receipt Date: 20211022
  Transmission Date: 20220303
  Serious: Yes (unspecified)
  Sender: FDA-Public Use
  Company Number: None

PATIENT
  Age: 61 Year
  Sex: Female
  Weight: 67.5 kg

DRUGS (1)
  1. YUVAFEM [Suspect]
     Active Substance: ESTRADIOL HEMIHYDRATE
     Indication: Menopause
     Dosage: ?          QUANTITY:1 INSERT;
     Route: 067
     Dates: start: 20211015, end: 20211021

REACTIONS (6)
  - Drug hypersensitivity [None]
  - Pruritus [None]
  - Skin burning sensation [None]
  - Skin candida [None]
  - Therapy non-responder [None]
  - Product complaint [None]

NARRATIVE: CASE EVENT DATE: 20211017
